FAERS Safety Report 8831304 (Version 6)
Quarter: 2013Q3

REPORT INFORMATION
  Report Type: Report from Study
  Country: JP (occurrence: JP)
  Receive Date: 20121008
  Receipt Date: 20130814
  Transmission Date: 20140515
  Serious: Yes (Life-Threatening, Other)
  Sender: FDA-Public Use
  Company Number: JP-VERTEX PHARMACEUTICAL INC.-2012-022183

PATIENT
  Age: 62 Year
  Sex: Female

DRUGS (8)
  1. VX-950 (TELAPREVIR) [Suspect]
     Indication: CHRONIC HEPATITIS C
     Dosage: 1500 MG, UNK
     Route: 048
     Dates: start: 20120622, end: 20120809
  2. REBETOL [Suspect]
     Indication: CHRONIC HEPATITIS C
     Dosage: 400 MG, QD
     Route: 048
     Dates: start: 20120622, end: 20120704
  3. REBETOL [Suspect]
     Dosage: 200 MG, QD
     Route: 048
     Dates: start: 20120705, end: 20120809
  4. PEGINTRON [Suspect]
     Indication: CHRONIC HEPATITIS C
     Dosage: 1.5 ?G/KG, QW
     Route: 058
     Dates: start: 20120622, end: 20120628
  5. PEGINTRON [Suspect]
     Dosage: 0.75 ?G/KG, QW
     Route: 058
     Dates: start: 20120629, end: 20120809
  6. LIVACT [Concomitant]
     Dosage: 3 DF, QD
     Route: 048
     Dates: end: 20120913
  7. VOLTAREN [Concomitant]
     Dosage: UNK, PRN
     Route: 048
     Dates: start: 20120622, end: 20120802
  8. BIOFERMIN [Concomitant]
     Dosage: 3 DF, QD
     Route: 048
     Dates: start: 20120703

REACTIONS (3)
  - Cerebral infarction [Recovered/Resolved]
  - Retinopathy [Recovered/Resolved]
  - Platelet count decreased [Not Recovered/Not Resolved]
